FAERS Safety Report 18354783 (Version 2)
Quarter: 2020Q4

REPORT INFORMATION
  Report Type: Spontaneous
  Country: FR (occurrence: FR)
  Receive Date: 20201007
  Receipt Date: 20201027
  Transmission Date: 20210114
  Serious: Yes (Disabling, Other)
  Sender: FDA-Public Use
  Company Number: FR-AUROBINDO-AUR-APL-2020-051470

PATIENT
  Age: 71 Year
  Sex: Female

DRUGS (9)
  1. ESOMEPRAZOLE GASTRO-RESISTANT CAPSULE, HARD [Suspect]
     Active Substance: ESOMEPRAZOLE
     Dosage: UNK
     Route: 065
     Dates: start: 20200630
  2. PREDNISOLONE. [Suspect]
     Active Substance: PREDNISOLONE
     Indication: SPINAL COLUMN INJURY
  3. PREDNISOLONE. [Suspect]
     Active Substance: PREDNISOLONE
     Indication: BACK PAIN
     Dosage: 40 MILLIGRAM, ONCE A DAY
     Route: 065
     Dates: start: 20200621
  4. CODEINE+PARACETAMOL [Suspect]
     Active Substance: ACETAMINOPHEN\CODEINE PHOSPHATE
     Indication: SPINAL COLUMN INJURY
     Dosage: 1 DOSAGE FORM, FOUR TIMES/DAY (25/MG30 MG)
     Route: 065
     Dates: start: 20200621
  5. LIDOCAINE. [Suspect]
     Active Substance: LIDOCAINE
     Indication: SPINAL COLUMN INJURY
     Dosage: UNK
     Route: 062
     Dates: start: 20200621
  6. LIDOCAINE. [Suspect]
     Active Substance: LIDOCAINE
     Indication: BACK PAIN
  7. CODEINE+PARACETAMOL [Suspect]
     Active Substance: ACETAMINOPHEN\CODEINE PHOSPHATE
     Indication: BACK PAIN
     Dosage: UNK
     Route: 065
     Dates: start: 20200630
  8. ESOMEPRAZOLE GASTRO-RESISTANT CAPSULE, HARD [Suspect]
     Active Substance: ESOMEPRAZOLE
     Indication: PROPHYLAXIS AGAINST GASTROINTESTINAL ULCER
     Dosage: 20 MILLIGRAM, ONCE A DAY
     Route: 048
     Dates: start: 20200621
  9. OMEPRAZOLE. [Suspect]
     Active Substance: OMEPRAZOLE
     Indication: SPINAL COLUMN INJURY
     Dosage: UNK
     Route: 048
     Dates: start: 20200630, end: 202007

REACTIONS (9)
  - Candida infection [Not Recovered/Not Resolved]
  - Erythema [Not Recovered/Not Resolved]
  - Fatigue [Not Recovered/Not Resolved]
  - Rash [Not Recovered/Not Resolved]
  - Proteus infection [Not Recovered/Not Resolved]
  - Off label use [Recovered/Resolved]
  - Pruritus [Not Recovered/Not Resolved]
  - Genital discomfort [Not Recovered/Not Resolved]
  - Genital infection female [Not Recovered/Not Resolved]
